FAERS Safety Report 22382230 (Version 1)
Quarter: 2023Q2

REPORT INFORMATION
  Report Type: Spontaneous
  Country: US (occurrence: None)
  Receive Date: 20230530
  Receipt Date: 20230530
  Transmission Date: 20230722
  Serious: No
  Sender: FDA-Public Use
  Company Number: 2023A123483

PATIENT
  Age: 25804 Day
  Sex: Female

DRUGS (1)
  1. LYNPARZA [Suspect]
     Active Substance: OLAPARIB
     Indication: Ovarian cancer
     Dosage: UNKNOWN
     Route: 048
     Dates: start: 20230524

REACTIONS (3)
  - Dysphagia [Unknown]
  - Product preparation issue [Unknown]
  - Product after taste [Unknown]

NARRATIVE: CASE EVENT DATE: 20230524
